FAERS Safety Report 7018685-2 (Version None)
Quarter: 2010Q3

REPORT INFORMATION
  Report Type: 
  Country: None (occurrence: None)
  Receive Date: 20100924
  Receipt Date: 20100910
  Transmission Date: 20110219
  Serious: Yes (Other)
  Sender: FDA-Public Use
  Company Number: 2010GW000730

PATIENT
  Age: 66 Year
  Sex: Female

DRUGS (6)
  1. ALDARA [Suspect]
     Indication: ACTINIC KERATOSIS
     Dosage: 1.5 PCT;QOD;TOP, 2.5 PCT;5XW;TOP
     Route: 061
  2. ALDARA [Suspect]
     Indication: BASAL CELL CARCINOMA
     Dosage: 1.5 PCT;QOD;TOP, 2.5 PCT;5XW;TOP
     Route: 061
  3. AMILORIDE HCL AND HYDROCHLOROTHIAZIDE [Concomitant]
  4. LORAZEPAM [Concomitant]
  5. ESCITALOPRAM [Concomitant]
  6. DEXIBUPROFEN [Concomitant]

REACTIONS (5)
  - CHILLS [None]
  - ERYTHEMA MULTIFORME [None]
  - SCAB [None]
  - TOXIC EPIDERMAL NECROLYSIS [None]
  - URTICARIA [None]
